FAERS Safety Report 5589705-7 (Version None)
Quarter: 2008Q1

REPORT INFORMATION
  Report Type: 
  Country: None (occurrence: None)
  Receive Date: 20080114
  Receipt Date: 20080110
  Transmission Date: 20080703
  Serious: Yes (Other)
  Sender: FDA-Public Use
  Company Number: B0499554A

PATIENT
  Age: 8 Year
  Sex: Male
  Weight: 25 kg

DRUGS (3)
  1. RELENZA [Suspect]
     Indication: INFLUENZA
     Dosage: 10MG PER DAY
     Route: 055
     Dates: start: 20071203, end: 20071203
  2. PERIACTIN [Concomitant]
     Indication: INFLUENZA
     Dosage: 3.99MG PER DAY
     Route: 048
     Dates: start: 20071203
  3. MUCODYNE [Concomitant]
     Indication: INFLUENZA
     Dosage: 600MG PER DAY
     Route: 048
     Dates: start: 20071203

REACTIONS (1)
  - ABNORMAL BEHAVIOUR [None]
